FAERS Safety Report 6452774-6 (Version None)
Quarter: 2009Q4

REPORT INFORMATION
  Report Type: 
  Country: None (occurrence: None)
  Receive Date: 20091124
  Receipt Date: 20091118
  Transmission Date: 20100525
  Serious: Yes (Life-Threatening)
  Sender: FDA-Public Use
  Company Number: HR-PFIZER INC-2009299437

PATIENT
  Age: 64 Year
  Sex: Female

DRUGS (8)
  1. SORTIS [Suspect]
     Indication: HYPERLIPIDAEMIA
     Dosage: UNK
     Route: 048
     Dates: start: 20080101
  2. NORVASC [Suspect]
     Dosage: UNK
     Route: 048
  3. CLOPIDOGREL [Concomitant]
     Dosage: UNK
  4. CONCOR [Concomitant]
     Dosage: UNK
     Route: 048
  5. IRUMED [Concomitant]
     Dosage: UNK
     Route: 048
  6. IRUZID [Concomitant]
     Dosage: UNK
     Route: 048
  7. FURSEMID [Concomitant]
     Dosage: UNK
     Route: 048
  8. POTASSIUM CHLORIDE [Concomitant]

REACTIONS (9)
  - ASPHYXIA [None]
  - BLISTER [None]
  - DYSPNOEA [None]
  - FACE OEDEMA [None]
  - LOCALISED OEDEMA [None]
  - MALAISE [None]
  - OEDEMA MOUTH [None]
  - OEDEMA PERIPHERAL [None]
  - RASH [None]
